FAERS Safety Report 9352457 (Version 1)
Quarter: 2013Q2

REPORT INFORMATION
  Report Type: Report from Study
  Country: GB (occurrence: GB)
  Receive Date: 20130617
  Receipt Date: 20130617
  Transmission Date: 20140414
  Serious: Yes (Life-Threatening, Hospitalization, Other)
  Sender: FDA-Public Use
  Company Number: GB-BAXTER-2013BAX021644

PATIENT
  Age: 59 Year
  Sex: Female
  Weight: 99.6 kg

DRUGS (67)
  1. CYCLOPHOSPHAMIDE INJECTION 1G [Suspect]
     Indication: NON-HODGKIN^S LYMPHOMA UNSPECIFIED HISTOLOGY INDOLENT
     Route: 042
     Dates: start: 20120312
  2. CYCLOPHOSPHAMIDE INJECTION 1G [Suspect]
     Route: 042
     Dates: start: 20120614
  3. DOXORUBICIN HYDROCHLORIDE [Suspect]
     Indication: NON-HODGKIN^S LYMPHOMA UNSPECIFIED HISTOLOGY INDOLENT
     Route: 042
     Dates: start: 20120312
  4. DOXORUBICIN HYDROCHLORIDE [Suspect]
     Route: 042
     Dates: start: 20120614
  5. PREDNISOLONE [Suspect]
     Indication: NON-HODGKIN^S LYMPHOMA UNSPECIFIED HISTOLOGY INDOLENT
     Route: 048
     Dates: start: 20120312
  6. PREDNISOLONE [Suspect]
     Route: 048
     Dates: start: 20120618
  7. VINCRISTINE SULFATE [Suspect]
     Indication: NON-HODGKIN^S LYMPHOMA UNSPECIFIED HISTOLOGY INDOLENT
     Route: 040
     Dates: start: 20120312
  8. VINCRISTINE SULFATE [Suspect]
     Route: 040
     Dates: start: 20120614
  9. ACICLOVIR [Concomitant]
     Indication: PRODUCT USED FOR UNKNOWN INDICATION
     Route: 065
     Dates: start: 20120711, end: 20120727
  10. ALLOPURINOL [Concomitant]
     Indication: PRODUCT USED FOR UNKNOWN INDICATION
     Route: 065
     Dates: start: 20120309
  11. AMBISOME [Concomitant]
     Indication: PRODUCT USED FOR UNKNOWN INDICATION
     Route: 065
     Dates: start: 20120713, end: 20120713
  12. CANESTEN [Concomitant]
     Indication: CANDIDA INFECTION
     Route: 065
     Dates: start: 20120708, end: 20120726
  13. CHLORHEXIDINE GLUCONATE [Concomitant]
     Indication: MUCOSAL INFLAMMATION
     Route: 065
     Dates: start: 20120711, end: 20120727
  14. CHLORPHENAMINE MALEATE [Concomitant]
     Indication: ERYTHEMA
     Route: 065
     Dates: start: 20120714
  15. CLEXANE [Concomitant]
     Indication: PULMONARY EMBOLISM
     Route: 065
     Dates: start: 20120713, end: 20120902
  16. CO-AMOXICLAV [Concomitant]
     Indication: URINARY TRACT INFECTION
     Route: 065
     Dates: start: 20120827, end: 20120831
  17. CO-CODAMOL [Concomitant]
     Indication: OSTEOARTHRITIS
     Route: 065
     Dates: start: 200504
  18. CORSODYL [Concomitant]
     Indication: PRODUCT USED FOR UNKNOWN INDICATION
     Route: 065
     Dates: start: 20120625, end: 20120627
  19. CYCLIZINE [Concomitant]
     Indication: NAUSEA
     Route: 065
     Dates: start: 20120604
  20. DEXAMETHASONE [Concomitant]
     Indication: PRODUCT USED FOR UNKNOWN INDICATION
     Route: 065
     Dates: start: 20120702, end: 20120702
  21. DOMPERIDONE [Concomitant]
     Indication: NAUSEA
     Route: 065
     Dates: start: 20120312
  22. DOMPERIDONE [Concomitant]
     Indication: VOMITING
  23. FERROUS SULPHATE [Concomitant]
     Indication: ANAEMIA
     Route: 065
     Dates: start: 20120626, end: 20120711
  24. FILGRASTIM [Concomitant]
     Indication: NEUTROPENIA
     Route: 065
     Dates: start: 20120712, end: 20120712
  25. FILGRASTIM [Concomitant]
     Indication: PRODUCT USED FOR UNKNOWN INDICATION
  26. FLUCLOXACILLIN [Concomitant]
     Indication: PRODUCT USED FOR UNKNOWN INDICATION
     Route: 065
     Dates: start: 20120609, end: 20120825
  27. FOLIC ACID [Concomitant]
     Indication: ANAEMIA
     Route: 065
     Dates: start: 20120624, end: 20120704
  28. FUROSEMIDE [Concomitant]
     Indication: OEDEMA
     Route: 065
     Dates: start: 20120624, end: 20120724
  29. G-CSF [Concomitant]
     Indication: PRODUCT USED FOR UNKNOWN INDICATION
     Route: 065
  30. GELOFUSINE [Concomitant]
     Indication: PRODUCT USED FOR UNKNOWN INDICATION
     Route: 065
  31. GENTAMICIN SULFATE [Concomitant]
     Indication: PRODUCT USED FOR UNKNOWN INDICATION
     Route: 065
     Dates: start: 20120701, end: 20120702
  32. GLUCOSE [Concomitant]
     Indication: PRODUCT USED FOR UNKNOWN INDICATION
     Route: 065
  33. HALOPERIDOL [Concomitant]
     Indication: NAUSEA
     Route: 065
     Dates: start: 20120904, end: 20120926
  34. HYDROCORTISONE [Concomitant]
     Indication: PRODUCT USED FOR UNKNOWN INDICATION
     Route: 065
     Dates: start: 20120708
  35. INSULIN [Concomitant]
     Indication: BLOOD GLUCOSE INCREASED
     Route: 065
     Dates: start: 20120727, end: 20120727
  36. LANSOPRAZOLE [Concomitant]
     Indication: HIATUS HERNIA
     Route: 065
     Dates: start: 200906
  37. LAXIDO [Concomitant]
     Indication: PRODUCT USED FOR UNKNOWN INDICATION
     Route: 065
  38. LEVOMEPROMAZINE [Concomitant]
     Indication: OEDEMA
     Route: 065
     Dates: start: 20120724, end: 20120724
  39. LEVOMEPROMAZINE [Concomitant]
     Indication: ANXIETY
  40. LORAZEPAM [Concomitant]
     Indication: ANXIETY
     Route: 065
     Dates: start: 20120712, end: 20120713
  41. MAGNESIUM [Concomitant]
     Indication: PRODUCT USED FOR UNKNOWN INDICATION
     Route: 065
  42. MEROPENEM [Concomitant]
     Indication: INFECTION
     Route: 065
     Dates: start: 20120711, end: 20120810
  43. METARAMINOL TARTRATE [Concomitant]
     Indication: HYPOTENSION
     Route: 065
     Dates: start: 20120731, end: 20120731
  44. METOCLOPRAMIDE [Concomitant]
     Indication: NAUSEA
     Route: 065
     Dates: start: 20120410, end: 20120927
  45. MIDAZOLAM [Concomitant]
     Indication: PRODUCT USED FOR UNKNOWN INDICATION
     Route: 065
  46. NAPROXEN [Concomitant]
     Indication: OSTEOARTHRITIS
     Route: 065
     Dates: start: 200906
  47. NYSTATIN [Concomitant]
     Indication: ORAL CANDIDIASIS
     Route: 065
     Dates: start: 20120609, end: 20120921
  48. ONDANSETRON [Concomitant]
     Indication: PROPHYLAXIS OF NAUSEA AND VOMITING
     Route: 065
     Dates: start: 20120312
  49. ORAMORPH [Concomitant]
     Indication: PAIN
     Route: 065
     Dates: start: 20120624, end: 20120626
  50. PARACETAMOL [Concomitant]
     Indication: ARTHRALGIA
     Route: 065
     Dates: start: 20120312
  51. PHOSPHATE-SANDOZ [Concomitant]
     Indication: PRODUCT USED FOR UNKNOWN INDICATION
     Route: 065
  52. PREDNISOLONE [Concomitant]
     Indication: DYSAESTHESIA PHARYNX
     Route: 065
     Dates: start: 20120312
  53. QUININE SULFATE [Concomitant]
     Indication: NIGHT SWEATS
     Route: 065
     Dates: start: 200504
  54. SANDO-K [Concomitant]
     Indication: BLOOD POTASSIUM DECREASED
     Route: 065
     Dates: start: 20120714, end: 20120808
  55. SERTRALINE HYDROCHLORIDE [Concomitant]
     Indication: DEPRESSION
     Route: 065
     Dates: start: 201006
  56. SERTRALINE HYDROCHLORIDE [Concomitant]
     Route: 065
     Dates: start: 20100613, end: 20120626
  57. SLOW-K [Concomitant]
     Indication: BLOOD POTASSIUM DECREASED
     Route: 065
     Dates: start: 20120808, end: 20120810
  58. SPIRONOLACTONE [Concomitant]
     Indication: PRODUCT USED FOR UNKNOWN INDICATION
     Route: 065
     Dates: start: 20120730, end: 20120803
  59. TAZOCIN [Concomitant]
     Indication: PRODUCT USED FOR UNKNOWN INDICATION
     Route: 065
     Dates: start: 20120701, end: 20120703
  60. UROKINASE [Concomitant]
     Indication: PRODUCT USED FOR UNKNOWN INDICATION
     Route: 065
     Dates: start: 20120611, end: 20120612
  61. WARFARIN SODIUM [Concomitant]
     Indication: PULMONARY EMBOLISM
     Route: 065
     Dates: start: 20120918
  62. AMILORIDE HYDROCHLORIDE [Concomitant]
     Indication: FLUID RETENTION
     Route: 065
     Dates: start: 20120713, end: 20120817
  63. CALCIUM GLUCONATE [Concomitant]
     Indication: BLOOD CALCIUM DECREASED
     Route: 065
     Dates: start: 20120722, end: 20120722
  64. HORMONIN [Concomitant]
     Indication: MENOPAUSAL SYMPTOMS
     Route: 065
     Dates: start: 201107
  65. WHOLE BLOOD [Concomitant]
     Indication: PRODUCT USED FOR UNKNOWN INDICATION
     Route: 065
  66. PLATELETS [Concomitant]
     Indication: PRODUCT USED FOR UNKNOWN INDICATION
     Route: 065
  67. PLATELETS [Concomitant]
     Indication: PRODUCT USED FOR UNKNOWN INDICATION
     Route: 065

REACTIONS (3)
  - Febrile neutropenia [Recovered/Resolved]
  - Infection [Recovered/Resolved]
  - Neutropenia [Recovered/Resolved]
